FAERS Safety Report 7512441-4 (Version None)
Quarter: 2011Q2

REPORT INFORMATION
  Report Type: 
  Country: None (occurrence: None)
  Receive Date: 20110525
  Receipt Date: 20110525
  Transmission Date: 20111010
  Serious: Yes (Disabling)
  Sender: FDA-Public Use
  Company Number: None

PATIENT
  Sex: Female
  Weight: 121.1104 kg

DRUGS (2)
  1. CELEXA [Suspect]
     Indication: BIPOLAR DISORDER
     Dosage: DAILY
     Dates: start: 20090701
  2. ABILIFY [Suspect]
     Indication: BIPOLAR DISORDER
     Dosage: DAILY
     Dates: start: 20060401

REACTIONS (5)
  - DIARRHOEA [None]
  - HYPERSENSITIVITY [None]
  - TREMOR [None]
  - MUSCLE SPASMS [None]
  - PALPITATIONS [None]
